FAERS Safety Report 9540344 (Version 2)
Quarter: 2013Q3

REPORT INFORMATION
  Report Type: Report from Study
  Country: UG (occurrence: UG)
  Receive Date: 20130920
  Receipt Date: 20130920
  Transmission Date: 20140515
  Serious: Yes (Hospitalization, Other)
  Sender: FDA-Public Use
  Company Number: UG-ABBVIE-13P-165-1108875-00

PATIENT
  Sex: 0

DRUGS (4)
  1. ALUVIA [Suspect]
     Indication: HIV INFECTION
     Route: 048
     Dates: start: 20110322
  2. COTRIMOXAZOLE [Concomitant]
     Indication: PRODUCT USED FOR UNKNOWN INDICATION
     Dates: start: 20070427
  3. TDF [Concomitant]
     Indication: PRODUCT USED FOR UNKNOWN INDICATION
     Dates: start: 20110322
  4. LAMIVUDINE [Concomitant]
     Indication: HIV INFECTION
     Dates: start: 20070427

REACTIONS (1)
  - Sepsis [Recovered/Resolved]
